FAERS Safety Report 5779442-8 (Version None)
Quarter: 2008Q2

REPORT INFORMATION
  Report Type: 
  Country: None (occurrence: None)
  Receive Date: 20080619
  Receipt Date: 20080609
  Transmission Date: 20081010
  Serious: Yes (Other)
  Sender: FDA-Public Use
  Company Number: CA-PFIZER INC-2006055414

PATIENT
  Sex: Male
  Weight: 76 kg

DRUGS (13)
  1. SU-011,248 [Suspect]
     Indication: RENAL CELL CARCINOMA
     Route: 048
     Dates: start: 20060111, end: 20060322
  2. HYDROMORPHONE HYDROCHLORIDE [Concomitant]
     Route: 048
  3. GABAPENTIN [Concomitant]
     Route: 048
  4. DOCUSATE SODIUM [Concomitant]
     Route: 048
  5. SODIUM POLYSTYRENE SULFONATE [Concomitant]
     Route: 048
  6. NIFEDIPINE [Concomitant]
     Route: 048
     Dates: start: 20050101, end: 20060323
  7. CANDESARTAN CILEXETIL [Concomitant]
     Route: 048
  8. PRAVASTATIN SODIUM [Concomitant]
     Route: 048
  9. VITAMIN CAP [Concomitant]
     Route: 048
  10. EPOETIN ALFA [Concomitant]
     Route: 058
  11. SEVELAMER HYDROCHLORIDE [Concomitant]
     Route: 048
  12. LORAZEPAM [Concomitant]
     Route: 048
  13. PANTOPRAZOLE SODIUM [Concomitant]
     Route: 048

REACTIONS (1)
  - BUDD-CHIARI SYNDROME [None]
